FAERS Safety Report 6090373-9 (Version None)
Quarter: 2009Q1

REPORT INFORMATION
  Report Type: 
  Country: None (occurrence: None)
  Receive Date: 20090224
  Receipt Date: 20090218
  Transmission Date: 20090719
  Serious: Yes (Other)
  Sender: FDA-Public Use
  Company Number: ES-GILEAD-2009-0020018

PATIENT
  Sex: Female

DRUGS (3)
  1. TRUVADA [Suspect]
  2. PREZISTA [Concomitant]
  3. ISENTRESS [Concomitant]

REACTIONS (1)
  - NEOPLASM [None]
